FAERS Safety Report 5339461-2 (Version None)
Quarter: 2007Q2

REPORT INFORMATION
  Report Type: 
  Country: None (occurrence: None)
  Receive Date: 20070404
  Receipt Date: 20060414
  Transmission Date: 20071010
  Serious: Yes (Other)
  Sender: FDA-Public Use
  Company Number: 2006051208

PATIENT
  Age: 86 Year
  Sex: Female

DRUGS (3)
  1. GEODON [Suspect]
     Indication: DEMENTIA
     Dosage: 120 MG (60 MG, 2 IN 1 D) ORAL
     Route: 048
  2. SINEMET [Concomitant]
  3. REMERON [Concomitant]

REACTIONS (1)
  - TRISMUS [None]
